FAERS Safety Report 23149326 (Version 1)
Quarter: 2023Q4

REPORT INFORMATION
  Report Type: Spontaneous
  Country: US (occurrence: US)
  Receive Date: 20231106
  Receipt Date: 20231106
  Transmission Date: 20240110
  Serious: Yes (Other)
  Sender: FDA-Public Use
  Company Number: US-BAYER-2023A157035

PATIENT
  Age: 58 Year
  Sex: Male

DRUGS (1)
  1. KOVALTRY [Suspect]
     Active Substance: ANTIHEMOPHILIC FACTOR, HUMAN RECOMBINANT
     Indication: Anticoagulant therapy
     Dosage: INFUSE 4075 UNITS (+/-10%) IV OVER 3 TO 5
     Route: 042

REACTIONS (4)
  - Haemarthrosis [None]
  - Ear haemorrhage [None]
  - Ear pain [None]
  - Arthralgia [None]

NARRATIVE: CASE EVENT DATE: 20231031
